FAERS Safety Report 9203536 (Version 1)
Quarter: 2013Q2

REPORT INFORMATION
  Report Type: Spontaneous
  Country: QA (occurrence: QA)
  Receive Date: 20130402
  Receipt Date: 20130402
  Transmission Date: 20140414
  Serious: Yes (Hospitalization)
  Sender: FDA-Public Use
  Company Number: QA-SANOFI-AVENTIS-2013SA010551

PATIENT
  Age: 51 Year
  Sex: Female
  Weight: 55 kg

DRUGS (14)
  1. SPIRONOLACTONE [Suspect]
     Indication: PRODUCT USED FOR UNKNOWN INDICATION
     Route: 065
  2. METHYLPREDNISOLONE [Suspect]
     Indication: HODGKIN^S DISEASE
     Dosage: ON DAYS 1-4
     Route: 042
     Dates: start: 20120423, end: 20120426
  3. ETOPOSIDE [Suspect]
     Indication: HODGKIN^S DISEASE
     Dosage: ON DAYS 1-4
     Route: 042
     Dates: start: 20120423, end: 20120426
  4. CISPLATIN [Suspect]
     Indication: HODGKIN^S DISEASE
     Dosage: GIVEN AS CONTINUOUS INFUSION ON DAYS 1-4
     Route: 042
     Dates: start: 20120423, end: 20120426
  5. FUROSEMIDE [Suspect]
     Indication: PRODUCT USED FOR UNKNOWN INDICATION
     Route: 065
  6. CYTARABINE [Suspect]
     Indication: HODGKIN^S DISEASE
     Dosage: ON DAY 5
     Route: 042
     Dates: start: 20120427, end: 20120427
  7. FILGRASTIM [Suspect]
     Indication: LEUKOPENIA
     Route: 058
     Dates: start: 201205, end: 201205
  8. FILGRASTIM [Suspect]
     Indication: NEUTROPENIA
     Route: 058
     Dates: start: 201205, end: 201205
  9. ENTECAVIR [Concomitant]
  10. PROPRANOLOL [Concomitant]
  11. ALLOPURINOL [Concomitant]
  12. LACTULOSE [Concomitant]
  13. VANCOMYCIN [Concomitant]
     Route: 042
  14. PIPERACILLIN/TAZOBACTAM [Concomitant]

REACTIONS (4)
  - Hypophosphataemia [Recovered/Resolved]
  - Neutropenia [Recovered/Resolved]
  - Hypokalaemia [Unknown]
  - Leukopenia [Recovered/Resolved]
